FAERS Safety Report 8474392-0 (Version None)
Quarter: 2012Q2

REPORT INFORMATION
  Report Type: 
  Country: None (occurrence: None)
  Receive Date: 20120628
  Receipt Date: 20120507
  Transmission Date: 20120825
  Serious: Yes (Other)
  Sender: FDA-Public Use
  Company Number: US-MYLANLABS-2012S1008844

PATIENT
  Age: 48 Year
  Sex: Male

DRUGS (3)
  1. CLOZAPINE [Suspect]
     Indication: SCHIZOPHRENIA
     Route: 048
     Dates: start: 20100101, end: 20120423
  2. DOXYCYCLINE [Suspect]
     Indication: BRONCHITIS
     Dates: start: 20120424, end: 20120501
  3. CLOZAPINE [Suspect]
     Route: 048
     Dates: start: 20100101, end: 20120423

REACTIONS (1)
  - GRANULOCYTOPENIA [None]
